FAERS Safety Report 11314664 (Version 4)
Quarter: 2016Q1

REPORT INFORMATION
  Report Type: Spontaneous
  Country: BR (occurrence: BR)
  Receive Date: 20150727
  Receipt Date: 20160226
  Transmission Date: 20160525
  Serious: Yes (Hospitalization, Disabling, Other)
  Sender: FDA-Public Use
  Company Number: BR-BIOMARINAP-BR-2015-106908

PATIENT
  Sex: Male
  Weight: 28 kg

DRUGS (1)
  1. NAGLAZYME [Suspect]
     Active Substance: GALSULFASE
     Indication: MUCOPOLYSACCHARIDOSIS VI
     Dosage: 25 MG, QW
     Route: 042
     Dates: start: 20100706

REACTIONS (2)
  - Abasia [Recovering/Resolving]
  - Spinal cord compression [Recovering/Resolving]
